FAERS Safety Report 16845431 (Version 1)
Quarter: 2019Q4

REPORT INFORMATION
  Report Type: Spontaneous
  Country: US (occurrence: US)
  Receive Date: 20190924
  Receipt Date: 20190924
  Transmission Date: 20200122
  Serious: Yes (Hospitalization)
  Sender: FDA-Public Use
  Company Number: None

PATIENT
  Age: 73 Year
  Sex: Female

DRUGS (19)
  1. BISOPRIOL [Concomitant]
  2. CITALOPRAM [Concomitant]
     Active Substance: CITALOPRAM HYDROBROMIDE
  3. DICLOFENAC [Concomitant]
     Active Substance: DICLOFENAC
  4. GABAPENTIN. [Concomitant]
     Active Substance: GABAPENTIN
  5. ISOSORB MONO [Concomitant]
     Active Substance: ISOSORBIDE MONONITRATE
  6. PALVIX [Concomitant]
  7. IBRANCE [Suspect]
     Active Substance: PALBOCICLIB
     Indication: BREAST CANCER
     Route: 048
  8. ASPIRIN. [Concomitant]
     Active Substance: ASPIRIN
  9. FLUTICASONE. [Concomitant]
     Active Substance: FLUTICASONE
  10. GLIPIZIDE. [Concomitant]
     Active Substance: GLIPIZIDE
  11. NORCO [Concomitant]
     Active Substance: ACETAMINOPHEN\HYDROCODONE BITARTRATE
  12. BREO ELLIPTA [Concomitant]
     Active Substance: FLUTICASONE FUROATE\VILANTEROL TRIFENATATE
  13. REQUIP [Concomitant]
     Active Substance: ROPINIROLE HYDROCHLORIDE
  14. COMBVIENT [Concomitant]
  15. LEVOTHYROXIN [Concomitant]
     Active Substance: LEVOTHYROXINE
  16. ATORVASTATIN [Concomitant]
     Active Substance: ATORVASTATIN
  17. TAMOXIFEN [Concomitant]
     Active Substance: TAMOXIFEN
  18. NITROSTAT [Concomitant]
     Active Substance: NITROGLYCERIN
  19. NOVOLOG [Concomitant]
     Active Substance: INSULIN ASPART

REACTIONS (2)
  - Bladder disorder [None]
  - Renal disorder [None]

NARRATIVE: CASE EVENT DATE: 20190909
